FAERS Safety Report 16248921 (Version 1)
Quarter: 2019Q2

REPORT INFORMATION
  Report Type: Spontaneous
  Country: US (occurrence: US)
  Receive Date: 20190429
  Receipt Date: 20190429
  Transmission Date: 20190711
  Serious: No
  Sender: FDA-Public Use
  Company Number: US-AMGEN-USASP2019064953

PATIENT
  Age: 87 Year
  Sex: Female

DRUGS (2)
  1. REPATHA [Suspect]
     Active Substance: EVOLOCUMAB
     Indication: ANGINA PECTORIS
     Dosage: 140 MILLIGRAM PER MILLILITRE, QMO
     Route: 058
     Dates: start: 20180413
  2. REPATHA [Suspect]
     Active Substance: EVOLOCUMAB
     Indication: ARTERIOSCLEROSIS CORONARY ARTERY

REACTIONS (3)
  - Rhinorrhoea [Not Recovered/Not Resolved]
  - Sneezing [Not Recovered/Not Resolved]
  - Pain in extremity [Not Recovered/Not Resolved]
